FAERS Safety Report 7590617-8 (Version None)
Quarter: 2011Q3

REPORT INFORMATION
  Report Type: 
  Country: None (occurrence: None)
  Receive Date: 20110705
  Receipt Date: 20110622
  Transmission Date: 20111222
  Serious: Yes (Hospitalization)
  Sender: FDA-Public Use
  Company Number: FR-CELGENEUS-056-50794-11053080

PATIENT
  Age: 50 Year
  Sex: Male
  Weight: 130 kg

DRUGS (2)
  1. VIDAZA [Suspect]
     Dosage: 175 MG/DAY
     Route: 050
     Dates: start: 20100201, end: 20100401
  2. ZOFRAN [Concomitant]
     Indication: ANTIEMETIC SUPPORTIVE CARE
     Dosage: 16 MILLIGRAM
     Route: 065

REACTIONS (2)
  - MYOCARDITIS [None]
  - REFRACTORY ANAEMIA WITH AN EXCESS OF BLASTS [None]
